FAERS Safety Report 5359154-5 (Version None)
Quarter: 2007Q2

REPORT INFORMATION
  Report Type: 
  Country: None (occurrence: None)
  Receive Date: 20070615
  Receipt Date: 20070608
  Transmission Date: 20071010
  Serious: Yes (Death, Hospitalization, Other)
  Sender: FDA-Public Use
  Company Number: VE-ABBOTT-07P-178-0368607-00

PATIENT
  Age: 83 Year
  Sex: Female

DRUGS (2)
  1. HUMIRA [Suspect]
     Indication: RHEUMATOID ARTHRITIS
     Route: 058
     Dates: start: 20070101, end: 20070411
  2. NSAID'S [Concomitant]
     Indication: DRUG USE FOR UNKNOWN INDICATION
     Dates: start: 20020101

REACTIONS (3)
  - METASTASES TO LUNG [None]
  - PULMONARY EMBOLISM [None]
  - RESPIRATORY DISTRESS [None]
